FAERS Safety Report 7717503-4 (Version None)
Quarter: 2011Q3

REPORT INFORMATION
  Report Type: 
  Country: None (occurrence: None)
  Receive Date: 20110824
  Receipt Date: 20110809
  Transmission Date: 20111222
  Serious: Yes (Hospitalization, Other)
  Sender: FDA-Public Use
  Company Number: 2008S1011874

PATIENT
  Age: 75 Year
  Sex: Female

DRUGS (11)
  1. LIPITOR [Concomitant]
  2. ASPIRIN [Concomitant]
  3. COUMADIN [Concomitant]
  4. ACTONEL [Concomitant]
  5. PHOSPHOSODA FLAVOR NOT SPECIFIED [Suspect]
     Indication: COLONOSCOPY
     Dosage: 90 ML; TOTAL; PO
     Route: 048
     Dates: start: 20070529, end: 20070529
  6. BENAZEPRIL HYDROCHLORIDE [Concomitant]
  7. METFORMIN HCL [Concomitant]
  8. METOPROLOL [Concomitant]
  9. SYNTHROID [Concomitant]
  10. INDAPAMIDE [Concomitant]
  11. DULCOLAX [Concomitant]

REACTIONS (13)
  - RENAL FAILURE ACUTE [None]
  - NEPHROPATHY [None]
  - VOMITING [None]
  - DIALYSIS [None]
  - NAUSEA [None]
  - PARAESTHESIA [None]
  - PARAESTHESIA ORAL [None]
  - DECREASED APPETITE [None]
  - PYREXIA [None]
  - HYPERPARATHYROIDISM [None]
  - ANAEMIA [None]
  - RENAL TUBULAR NECROSIS [None]
  - DEHYDRATION [None]
